FAERS Safety Report 11365891 (Version 4)
Quarter: 2016Q1

REPORT INFORMATION
  Report Type: Spontaneous
  Country: US (occurrence: US)
  Receive Date: 20150811
  Receipt Date: 20160218
  Transmission Date: 20160525
  Serious: Yes (Hospitalization, Other)
  Sender: FDA-Public Use
  Company Number: US-DSJP-DSU-2015-124877

PATIENT

DRUGS (7)
  1. ZEBETA [Concomitant]
     Active Substance: BISOPROLOL FUMARATE
     Indication: PRODUCT USED FOR UNKNOWN INDICATION
     Dosage: 5 MG, UNK
  2. COLESTID [Concomitant]
     Active Substance: COLESTIPOL HYDROCHLORIDE
     Indication: PRODUCT USED FOR UNKNOWN INDICATION
     Dosage: 1 G, QD
     Route: 048
  3. METFORMIN [Concomitant]
     Active Substance: METFORMIN HYDROCHLORIDE
     Indication: PRODUCT USED FOR UNKNOWN INDICATION
     Dosage: 500 MG, QD
     Dates: start: 2005
  4. ERGOCALCIFEROL. [Concomitant]
     Active Substance: ERGOCALCIFEROL
     Indication: PRODUCT USED FOR UNKNOWN INDICATION
     Dosage: 50000 IU, UNK
     Route: 048
  5. BENICAR [Suspect]
     Active Substance: OLMESARTAN MEDOXOMIL
     Indication: PRODUCT USED FOR UNKNOWN INDICATION
     Dosage: UNK
     Dates: start: 20090112
  6. BENICAR HCT [Suspect]
     Active Substance: HYDROCHLOROTHIAZIDE\OLMESARTAN MEDOXOMIL
     Indication: HYPERTENSION
     Dosage: 40/12.5 MG, QD
     Route: 048
     Dates: start: 200406, end: 201411
  7. LIPITOR [Concomitant]
     Active Substance: ATORVASTATIN CALCIUM
     Indication: PRODUCT USED FOR UNKNOWN INDICATION
     Dosage: 20 MG, QD
     Route: 048
     Dates: start: 2007

REACTIONS (8)
  - Renal failure [Unknown]
  - Inflammatory bowel disease [Unknown]
  - Colon cancer [Recovered/Resolved]
  - Nephrolithiasis [Unknown]
  - Haemorrhoids [Unknown]
  - Rectal haemorrhage [Unknown]
  - Emotional distress [Not Recovered/Not Resolved]
  - Malabsorption [Unknown]

NARRATIVE: CASE EVENT DATE: 200506
